FAERS Safety Report 4705032-1 (Version None)
Quarter: 2005Q2

REPORT INFORMATION
  Report Type: 
  Country: None (occurrence: None)
  Receive Date: 20050630
  Receipt Date: 20050630
  Transmission Date: 20051028
  Serious: Yes (Hospitalization)
  Sender: FDA-Public Use
  Company Number: None

PATIENT
  Age: 49 Year
  Sex: Female
  Weight: 77.4 kg

DRUGS (10)
  1. TOPOTECAN 3.5MG/M2 WEEKLY X 3; REPEAT Q28DAYS [Suspect]
     Indication: OVARIAN CANCER
     Dosage: 3.5MG/M2 WEEKLY X 3 IV
     Route: 042
     Dates: start: 20050610
  2. TOPOTECAN 3.5MG/M2 WEEKLY X 3; REPEAT Q28DAYS [Suspect]
     Indication: OVARIAN CANCER
     Dosage: 3.5MG/M2 WEEKLY X 3 IV
     Route: 042
     Dates: start: 20050617
  3. TOPOTECAN 3.5MG/M2 WEEKLY X 3; REPEAT Q28DAYS [Suspect]
     Indication: OVARIAN CANCER
     Dosage: 3.5MG/M2 WEEKLY X 3 IV
     Route: 042
     Dates: start: 20050624
  4. TAXOTERE [Suspect]
     Indication: OVARIAN CANCER
     Dosage: 30MG/M2  WEEKLY  X 3  IV
     Route: 042
     Dates: start: 20050610
  5. TAXOTERE [Suspect]
     Indication: OVARIAN CANCER
     Dosage: 30MG/M2  WEEKLY  X 3  IV
     Route: 042
     Dates: start: 20050617
  6. TAXOTERE [Suspect]
     Indication: OVARIAN CANCER
     Dosage: 30MG/M2  WEEKLY  X 3  IV
     Route: 042
     Dates: start: 20050624
  7. LISINOPRIL [Concomitant]
  8. AMITRIPTYLINE [Concomitant]
  9. SSRI [Concomitant]
  10. AMBIEN [Concomitant]

REACTIONS (1)
  - CHEST PAIN [None]
